FAERS Safety Report 4589652-3 (Version None)
Quarter: 2005Q1

REPORT INFORMATION
  Report Type: 
  Country: None (occurrence: None)
  Receive Date: 20050216
  Receipt Date: 20050214
  Transmission Date: 20050727
  Serious: Yes (Hospitalization)
  Sender: FDA-Public Use
  Company Number: DEWYE421814FEB05

PATIENT
  Age: 53 Year
  Sex: Male

DRUGS (3)
  1. VENLAFAXINE HCL [Suspect]
     Dosage: ORAL
     Route: 048
     Dates: start: 20050211, end: 20050211
  2. MIRTAZAPINE [Suspect]
     Dosage: ORAL
     Route: 048
     Dates: start: 20050211, end: 20050211
  3. ZOLPIDEM TARTRATE [Suspect]
     Dosage: ORAL
     Route: 048
     Dates: start: 20050211, end: 20050211

REACTIONS (5)
  - INTENTIONAL MISUSE [None]
  - SOMNOLENCE [None]
  - SYSTOLIC HYPERTENSION [None]
  - TACHYCARDIA [None]
  - WOUND [None]
